FAERS Safety Report 6968447-7 (Version None)
Quarter: 2010Q3

REPORT INFORMATION
  Report Type: 
  Country: None (occurrence: None)
  Receive Date: 20100907
  Receipt Date: 20100826
  Transmission Date: 20110219
  Serious: Yes (Other)
  Sender: FDA-Public Use
  Company Number: PHHY2010BR23467

PATIENT
  Sex: Female

DRUGS (1)
  1. DIOVAN HCT [Suspect]
     Dosage: 160/12.5 MG
     Route: 048

REACTIONS (7)
  - BLOOD PRESSURE INCREASED [None]
  - FEELING ABNORMAL [None]
  - GENERALISED OEDEMA [None]
  - HEADACHE [None]
  - OEDEMA PERIPHERAL [None]
  - SWELLING FACE [None]
  - URINE OUTPUT DECREASED [None]
